FAERS Safety Report 9478003 (Version 1)
Quarter: 2013Q3

REPORT INFORMATION
  Report Type: Spontaneous
  Country: GB (occurrence: GB)
  Receive Date: 20130827
  Receipt Date: 20130827
  Transmission Date: 20140515
  Serious: Yes (Other)
  Sender: FDA-Public Use
  Company Number: GB-BAYER-2013-102440

PATIENT
  Age: 23 Year
  Sex: Female
  Weight: 92.07 kg

DRUGS (2)
  1. YASMIN ED, FILM-COATED TABLETS, 0.03 MG/3 MG [Suspect]
     Indication: CONTRACEPTION
     Dosage: 1 DF, QD
     Route: 048
     Dates: start: 20130311
  2. SALBUTAMOL [Concomitant]

REACTIONS (5)
  - Anxiety [Not Recovered/Not Resolved]
  - Decreased appetite [Not Recovered/Not Resolved]
  - Depression [Not Recovered/Not Resolved]
  - Emotional disorder [Not Recovered/Not Resolved]
  - Fatigue [Not Recovered/Not Resolved]
